FAERS Safety Report 5894109-3 (Version None)
Quarter: 2008Q3

REPORT INFORMATION
  Report Type: 
  Country: None (occurrence: None)
  Receive Date: 20080923
  Receipt Date: 20080104
  Transmission Date: 20090109
  Serious: No
  Sender: FDA-Public Use
  Company Number: US-ASTRAZENECA-2008UW00321

PATIENT
  Age: 72 Year
  Sex: Female
  Weight: 81.6 kg

DRUGS (4)
  1. SEROQUEL [Suspect]
     Indication: HALLUCINATION, AUDITORY
     Dosage: 200 MG ONCE IN A.M. AND 2.5 TABS HS
     Route: 048
     Dates: start: 20030201
  2. DEPAKOTE [Concomitant]
  3. THYROID MEDICATION [Concomitant]
  4. DIOVAN HCT [Concomitant]

REACTIONS (3)
  - DRUG INEFFECTIVE [None]
  - FEELING DRUNK [None]
  - SOMNOLENCE [None]
